FAERS Safety Report 16032655 (Version 1)
Quarter: 2019Q1

REPORT INFORMATION
  Report Type: Spontaneous
  Country: US (occurrence: US)
  Receive Date: 20190305
  Receipt Date: 20190305
  Transmission Date: 20190418
  Serious: No
  Sender: FDA-Public Use
  Company Number: US-GLAXOSMITHKLINE-US2019037041

PATIENT
  Age: 53 Year
  Sex: Female

DRUGS (1)
  1. ANORO ELLIPTA [Suspect]
     Active Substance: UMECLIDINIUM BROMIDE\VILANTEROL TRIFENATATE
     Indication: PRODUCT USED FOR UNKNOWN INDICATION
     Dosage: 1 PUFF(S), QD
     Dates: start: 2017

REACTIONS (10)
  - Feeling cold [Recovered/Resolved]
  - Dry throat [Unknown]
  - Pallor [Recovered/Resolved]
  - Blood glucose increased [Unknown]
  - Red blood cell count decreased [Recovered/Resolved]
  - Tremor [Recovered/Resolved]
  - Sinus tachycardia [Unknown]
  - Platelet count decreased [Recovered/Resolved]
  - False positive investigation result [Unknown]
  - Thyroid function test abnormal [Unknown]

NARRATIVE: CASE EVENT DATE: 201901
